FAERS Safety Report 22339210 (Version 1)
Quarter: 2023Q2

REPORT INFORMATION
  Report Type: Report from Study
  Country: US (occurrence: US)
  Receive Date: 20230518
  Receipt Date: 20230518
  Transmission Date: 20230722
  Serious: Yes (Other)
  Sender: FDA-Public Use
  Company Number: US-JAZZ PHARMACEUTICALS-2022-US-031798

PATIENT
  Sex: Female

DRUGS (12)
  1. XYWAV [Suspect]
     Active Substance: CALCIUM OXYBATE\MAGNESIUM OXYBATE\POTASSIUM OXYBATE\SODIUM OXYBATE
     Indication: Hypersomnia
     Dosage: 6 GRAM
  2. SUNOSI [Concomitant]
     Active Substance: SOLRIAMFETOL
     Dosage: 0000
     Dates: start: 20220204
  3. FLUOXETINE HYDROCHLORIDE [Concomitant]
     Active Substance: FLUOXETINE HYDROCHLORIDE
     Dosage: 0000
     Dates: start: 20211211
  4. MUPIROCIN [Concomitant]
     Active Substance: MUPIROCIN
     Dosage: 0000
     Dates: start: 20211116
  5. MELOXICAM [Concomitant]
     Active Substance: MELOXICAM
     Dosage: 0000
     Dates: start: 20211105
  6. ESTRADIOL [Concomitant]
     Active Substance: ESTRADIOL
     Dosage: 0000
     Dates: start: 20211103
  7. ACYCLOVIR [Concomitant]
     Active Substance: ACYCLOVIR
     Dosage: 0000
     Dates: start: 20210113
  8. BUPROPION HYDROCHLORIDE [Concomitant]
     Active Substance: BUPROPION HYDROCHLORIDE
     Dosage: 0000
     Dates: start: 20211105
  9. MAGNESIUM GLUCONATE [Concomitant]
     Active Substance: MAGNESIUM GLUCONATE
     Dosage: 0000
     Dates: start: 20190201
  10. LYSINE [Concomitant]
     Active Substance: LYSINE
     Dosage: 0000
     Dates: start: 20020101
  11. MULTIVITAMIN [ASCORBIC ACID;BIOTIN;CALCIUM;CHOLINE BITARTRATE;CHROMIUM [Concomitant]
     Dosage: 0000
     Dates: start: 19720101
  12. VITAMIN B12 [Concomitant]
     Active Substance: CYANOCOBALAMIN
     Dosage: 0000
     Dates: start: 20220209

REACTIONS (2)
  - Neuropathy peripheral [Unknown]
  - Intentional dose omission [Unknown]
